FAERS Safety Report 4281816-1 (Version None)
Quarter: 2004Q1

REPORT INFORMATION
  Report Type: 
  Country: None (occurrence: None)
  Receive Date: 20040129
  Receipt Date: 20040129
  Transmission Date: 20041129
  Serious: Yes (Life-Threatening)
  Sender: FDA-Public Use
  Company Number: None

PATIENT
  Age: 14 Year
  Sex: Female
  Weight: 54.8852 kg

DRUGS (1)
  1. ZONEGRAN [Suspect]
     Indication: STEVENS-JOHNSON SYNDROME
     Dosage: ONE DAILY ORAL
     Route: 048
     Dates: start: 20031212, end: 20031227

REACTIONS (1)
  - STEVENS-JOHNSON SYNDROME [None]
